FAERS Safety Report 5871225-3 (Version None)
Quarter: 2008Q3

REPORT INFORMATION
  Report Type: 
  Country: None (occurrence: None)
  Receive Date: 20080829
  Receipt Date: 20071024
  Transmission Date: 20090109
  Serious: Yes (Hospitalization)
  Sender: FDA-Public Use
  Company Number: 2007-01040FE

PATIENT
  Age: 39 Year
  Sex: Female

DRUGS (3)
  1. LUTEINISING HORMONE RELEASING HORMONE() (LUTEINIZING HORMONE-RELEASING [Suspect]
     Indication: DIAGNOSTIC PROCEDURE
     Dosage: 100 MCG ONCE
     Route: 042
  2. THYROTROPHIN RELEASING HORMONE ( ) (THYROTROPHIN-RELEASING HORMONE) [Suspect]
     Indication: DIAGNOSTIC PROCEDURE
     Dosage: 200 MCG ONCE
     Route: 042
  3. INSULIN ( ) (INSULIN) [Suspect]
     Route: 042

REACTIONS (3)
  - HYPOGLYCAEMIA [None]
  - IIIRD NERVE PARALYSIS [None]
  - PITUITARY HAEMORRHAGE [None]
